FAERS Safety Report 4383541-5 (Version None)
Quarter: 2004Q2

REPORT INFORMATION
  Report Type: 
  Country: None (occurrence: None)
  Receive Date: 20040602
  Receipt Date: 20031001
  Transmission Date: 20050107
  Serious: Yes (Other)
  Sender: FDA-Public Use
  Company Number: JRFUSA2000005135

PATIENT
  Sex: Male
  Weight: 104.7809 kg

DRUGS (1)
  1. PROPULSID [Suspect]
     Indication: DRUG USE FOR UNKNOWN INDICATION

REACTIONS (12)
  - ANXIETY [None]
  - ARRHYTHMIA [None]
  - CARDIAC ARREST [None]
  - CARDIAC DISORDER [None]
  - DEPRESSION [None]
  - DISABILITY [None]
  - ELECTROCARDIOGRAM QT PROLONGED [None]
  - HEART RATE IRREGULAR [None]
  - INJURY [None]
  - RENAL FAILURE [None]
  - VENTRICULAR FIBRILLATION [None]
  - VENTRICULAR TACHYCARDIA [None]
